FAERS Safety Report 16839623 (Version 3)
Quarter: 2021Q1

REPORT INFORMATION
  Report Type: Spontaneous
  Country: US (occurrence: US)
  Receive Date: 20190923
  Receipt Date: 20210311
  Transmission Date: 20210419
  Serious: Yes (Other)
  Sender: FDA-Public Use
  Company Number: US-GILEAD-2019-0429680

PATIENT
  Age: 59 Year
  Sex: Male
  Weight: 106.12 kg

DRUGS (31)
  1. TRUVADA [Suspect]
     Active Substance: EMTRICITABINE\TENOFOVIR DISOPROXIL FUMARATE
     Indication: HIV INFECTION
     Dosage: UNK
     Route: 048
     Dates: start: 2012
  2. ATRIPLA [Suspect]
     Active Substance: EFAVIRENZ\EMTRICITABINE\TENOFOVIR DISOPROXIL FUMARATE
     Indication: HIV INFECTION
     Dosage: UNK
     Route: 065
     Dates: start: 2008, end: 200905
  3. EPIVIR [Concomitant]
     Active Substance: LAMIVUDINE
  4. ZERIT [Concomitant]
     Active Substance: STAVUDINE
  5. GABAPENTIN. [Concomitant]
     Active Substance: GABAPENTIN
  6. DARUNAVIR [Concomitant]
     Active Substance: DARUNAVIR
  7. NORVIR [Concomitant]
     Active Substance: RITONAVIR
  8. TRUVADA [Suspect]
     Active Substance: EMTRICITABINE\TENOFOVIR DISOPROXIL FUMARATE
     Dosage: UNK
     Route: 065
     Dates: start: 201503, end: 201707
  9. STRIBILD [Suspect]
     Active Substance: COBICISTAT\ELVITEGRAVIR\EMTRICITABINE\TENOFOVIR DISOPROXIL FUMARATE
     Dosage: UNK
     Route: 065
     Dates: start: 201503, end: 201707
  10. METOPROLOL. [Concomitant]
     Active Substance: METOPROLOL
     Dosage: UNK
     Dates: start: 20050805
  11. SUSTIVA [Concomitant]
     Active Substance: EFAVIRENZ
  12. VIDEX EC [Concomitant]
     Active Substance: DIDANOSINE
  13. BENZONATATE. [Concomitant]
     Active Substance: BENZONATATE
  14. PNEUMOCOCCAL CONJUGATE VACCINE [Concomitant]
     Active Substance: PNEUMOCOCCAL VACCINE POLYVALENT
  15. VIREAD [Suspect]
     Active Substance: TENOFOVIR DISOPROXIL FUMARATE
     Indication: HIV INFECTION
     Dosage: UNK
     Route: 048
     Dates: start: 2012
  16. CRIXIVAN [Concomitant]
     Active Substance: INDINAVIR SULFATE
  17. STRIBILD [Suspect]
     Active Substance: COBICISTAT\ELVITEGRAVIR\EMTRICITABINE\TENOFOVIR DISOPROXIL FUMARATE
     Dosage: UNK
     Route: 065
     Dates: start: 2014, end: 2015
  18. ATRIPLA [Suspect]
     Active Substance: EFAVIRENZ\EMTRICITABINE\TENOFOVIR DISOPROXIL FUMARATE
     Dosage: UNK
     Route: 065
     Dates: start: 201503, end: 201707
  19. VIRACEPT [Concomitant]
     Active Substance: NELFINAVIR MESYLATE
  20. VIREAD [Suspect]
     Active Substance: TENOFOVIR DISOPROXIL FUMARATE
     Dosage: UNK
     Route: 065
     Dates: start: 2004, end: 2008
  21. HYDROCHLOROTHIAZIDE. [Concomitant]
     Active Substance: HYDROCHLOROTHIAZIDE
     Dosage: UNK
     Dates: start: 20050805
  22. APTIVUS [Concomitant]
     Active Substance: TIPRANAVIR
  23. ATAZANAVIR. [Concomitant]
     Active Substance: ATAZANAVIR
  24. STRIBILD [Suspect]
     Active Substance: COBICISTAT\ELVITEGRAVIR\EMTRICITABINE\TENOFOVIR DISOPROXIL FUMARATE
     Indication: HIV INFECTION
     Dosage: UNK
     Route: 048
     Dates: start: 2012
  25. ODEFSEY [Concomitant]
     Active Substance: EMTRICITABINE\RILPIVIRINE HYDROCHLORIDE\TENOFOVIR ALAFENAMIDE FUMARATE
  26. REYATAZ [Concomitant]
     Active Substance: ATAZANAVIR SULFATE
  27. TIVICAY [Concomitant]
     Active Substance: DOLUTEGRAVIR SODIUM
  28. RITONAVIR. [Concomitant]
     Active Substance: RITONAVIR
  29. VIREAD [Suspect]
     Active Substance: TENOFOVIR DISOPROXIL FUMARATE
     Dosage: UNK
     Route: 065
     Dates: start: 201503, end: 201707
  30. PREZISTA [Concomitant]
     Active Substance: DARUNAVIR ETHANOLATE
  31. VIDEX [Concomitant]
     Active Substance: DIDANOSINE

REACTIONS (14)
  - Pain [Not Recovered/Not Resolved]
  - Anhedonia [Not Recovered/Not Resolved]
  - Flatulence [Unknown]
  - Abdominal pain upper [Unknown]
  - Osteoporosis [Not Recovered/Not Resolved]
  - Emotional distress [Not Recovered/Not Resolved]
  - Limb injury [Unknown]
  - Anxiety [Not Recovered/Not Resolved]
  - Femur fracture [Not Recovered/Not Resolved]
  - Economic problem [Not Recovered/Not Resolved]
  - Diarrhoea [Unknown]
  - Osteopenia [Recovered/Resolved]
  - Joint injury [Unknown]
  - Cachexia [Unknown]

NARRATIVE: CASE EVENT DATE: 2006
